FAERS Safety Report 4301583-2 (Version None)
Quarter: 2004Q1

REPORT INFORMATION
  Report Type: 
  Country: None (occurrence: None)
  Receive Date: 20040219
  Receipt Date: 20040209
  Transmission Date: 20041129
  Serious: Yes (Death, Life-Threatening, Hospitalization)
  Sender: FDA-Public Use
  Company Number: DE-JNJFOC-20040201982

PATIENT
  Age: 75 Year
  Sex: Female

DRUGS (22)
  1. TRAMADOL HCL [Suspect]
     Indication: PAIN
     Dosage: 15 DOSE (S), 1 IN 1 TOTAL, ORAL
     Route: 048
     Dates: start: 20020323, end: 20020323
  2. SPIZEF (CEFOTIAM HYDROCHLORIDE) [Concomitant]
  3. GENTAMICIN [Concomitant]
  4. VANCOMYCIN [Concomitant]
  5. FUROSEMIDE [Concomitant]
  6. MORPHINE SULFATE [Concomitant]
  7. SOLU-DECORTIN (PREDNISOLONE SODIUM SUCCINATE) [Concomitant]
  8. OMEPRAZOLE [Concomitant]
  9. PCM (PARACETAMOL) [Concomitant]
  10. BALDRIANDRAGEES (VALERIAN EXTRACT) [Concomitant]
  11. MCP (METOCLOPRAMIDE HYDROCHLORIDE) [Concomitant]
  12. PASPERTIN (METOCLOPRAMIDE HYDROCHLORIDE) [Concomitant]
  13. NOVALGIN (METAMIZOLE SODIUM) DROPS [Concomitant]
  14. PREDNISONE [Concomitant]
  15. PANTOZOL (PANTOPRAZOLE SODIUM) [Concomitant]
  16. DIMETICON (DIMETICONE) TABLETS [Concomitant]
  17. MULTIBIONTA (MULTIBIONTA) DROPS [Concomitant]
  18. LASIX [Concomitant]
  19. PERIPLASMAL (PERIPLASMAL) [Concomitant]
  20. NITRAZEPAM [Concomitant]
  21. ORGARAN (DANAPAROID SODIUM) [Concomitant]
  22. METRONIDAZOLE [Concomitant]

REACTIONS (2)
  - SEPTIC SHOCK [None]
  - STEVENS-JOHNSON SYNDROME [None]
